FAERS Safety Report 16464475 (Version 2)
Quarter: 2020Q3

REPORT INFORMATION
  Report Type: Spontaneous
  Country: US (occurrence: US)
  Receive Date: 20190621
  Receipt Date: 20200703
  Transmission Date: 20201102
  Serious: No
  Sender: FDA-Public Use
  Company Number: US-BRISTOL-MYERS SQUIBB COMPANY-BMS-2019-060361

PATIENT
  Sex: Female
  Weight: 72.56 kg

DRUGS (3)
  1. MACROBID [CLARITHROMYCIN] [Concomitant]
     Active Substance: CLARITHROMYCIN
     Indication: PRODUCT USED FOR UNKNOWN INDICATION
     Route: 065
  2. COUMADIN [Suspect]
     Active Substance: WARFARIN SODIUM
     Dosage: 7.5 MILLIGRAM, QD
     Route: 048
  3. COUMADIN [Suspect]
     Active Substance: WARFARIN SODIUM
     Indication: DEEP VEIN THROMBOSIS
     Dosage: 10 MILLIGRAM, QWK, 1/2 10MG TABLET DAILY FOR 2 DAYS EACH WEEK
     Route: 048
     Dates: start: 2008, end: 20200603

REACTIONS (3)
  - Pruritus [Unknown]
  - International normalised ratio abnormal [Unknown]
  - Rash macular [Unknown]
